FAERS Safety Report 7482891-3 (Version None)
Quarter: 2011Q2

REPORT INFORMATION
  Report Type: 
  Country: None (occurrence: None)
  Receive Date: 20110516
  Receipt Date: 20100413
  Transmission Date: 20111010
  Serious: Yes (Other)
  Sender: FDA-Public Use
  Company Number: PHHY2010DE23256

PATIENT
  Sex: Female
  Weight: 40 kg

DRUGS (2)
  1. EXTAVIA [Suspect]
     Dosage: 0.75 ML, QOD
     Route: 058
     Dates: start: 20100326
  2. EXTAVIA [Suspect]
     Dosage: UNK, REDUCED DOSE
     Route: 058

REACTIONS (5)
  - INFLUENZA LIKE ILLNESS [None]
  - TACHYCARDIA [None]
  - ANGINA PECTORIS [None]
  - HEADACHE [None]
  - RENAL PAIN [None]
